FAERS Safety Report 8364607-1 (Version None)
Quarter: 2012Q2

REPORT INFORMATION
  Report Type: 
  Country: None (occurrence: None)
  Receive Date: 20120516
  Receipt Date: 20120503
  Transmission Date: 20120825
  Serious: Yes (Hospitalization, Other)
  Sender: FDA-Public Use
  Company Number: US-ROCHE-1034499

PATIENT
  Sex: Male

DRUGS (9)
  1. ACCUTANE [Suspect]
     Indication: ACNE
     Dosage: FIRST THERAPY
     Route: 048
  2. ACCUTANE [Suspect]
     Dates: start: 19880601, end: 19890306
  3. ACCUTANE [Suspect]
     Dates: start: 19900103
  4. ACCUTANE [Suspect]
     Dates: start: 19870619
  5. ACCUTANE [Suspect]
     Dates: start: 19880404
  6. ACCUTANE [Suspect]
     Dates: start: 19900124
  7. ACCUTANE [Suspect]
     Dates: start: 19891019
  8. ACCUTANE [Suspect]
     Dates: start: 19891128
  9. ACCUTANE [Suspect]
     Dates: start: 19920908, end: 19930105

REACTIONS (8)
  - INTESTINAL PERFORATION [None]
  - ENTEROCUTANEOUS FISTULA [None]
  - BLOOD TRIGLYCERIDES INCREASED [None]
  - INFLAMMATORY BOWEL DISEASE [None]
  - CROHN'S DISEASE [None]
  - SMALL INTESTINAL OBSTRUCTION [None]
  - ANXIETY [None]
  - LIP DRY [None]
